FAERS Safety Report 15622694 (Version 2)
Quarter: 2019Q1

REPORT INFORMATION
  Report Type: Report from Study
  Country: US (occurrence: US)
  Receive Date: 20181115
  Receipt Date: 20190131
  Transmission Date: 20190417
  Serious: Yes (Other)
  Sender: FDA-Public Use
  Company Number: US-ACTELION-A-US2018-181729

PATIENT
  Age: 81 Year
  Sex: Male

DRUGS (2)
  1. UPTRAVI [Suspect]
     Active Substance: SELEXIPAG
     Indication: PULMONARY ARTERIAL HYPERTENSION
     Dosage: 1400 MCG, BID
     Route: 048
     Dates: start: 20161118, end: 20181129
  2. UPTRAVI [Suspect]
     Active Substance: SELEXIPAG
     Dosage: UNK
     Route: 048
     Dates: end: 20180117

REACTIONS (6)
  - Orthostatic hypertension [Unknown]
  - Squamous cell carcinoma [Unknown]
  - Labile blood pressure [Unknown]
  - Blood pressure fluctuation [Unknown]
  - Hypoxia [Unknown]
  - Pulmonary mass [Unknown]

NARRATIVE: CASE EVENT DATE: 201803
